FAERS Safety Report 7735268-7 (Version None)
Quarter: 2011Q3

REPORT INFORMATION
  Report Type: 
  Country: None (occurrence: None)
  Receive Date: 20110907
  Receipt Date: 20110524
  Transmission Date: 20111222
  Serious: No
  Sender: FDA-Public Use
  Company Number: US-BAYER-2011-044693

PATIENT
  Sex: Female

DRUGS (2)
  1. MIRENA [Suspect]
     Indication: HAEMORRHAGIC ANAEMIA
     Dosage: 20 MCG/24HR, CONT
     Route: 015
     Dates: start: 20101201
  2. ORAL CONTRACEPTIVE NOS [Concomitant]
     Indication: ABDOMINAL PAIN UPPER

REACTIONS (2)
  - DEVICE DISLOCATION [None]
  - ABDOMINAL PAIN UPPER [None]
